FAERS Safety Report 9443796 (Version 1)
Quarter: 2013Q3

REPORT INFORMATION
  Report Type: Spontaneous
  Country: PH (occurrence: PH)
  Receive Date: 20130806
  Receipt Date: 20130806
  Transmission Date: 20140515
  Serious: Yes (Other)
  Sender: FDA-Public Use
  Company Number: PH-009507513-1308PHL000866

PATIENT
  Age: 40 Year
  Sex: Female

DRUGS (1)
  1. COZAAR [Suspect]
     Dosage: 50 MG, QD
     Route: 048
     Dates: start: 20130718, end: 201307

REACTIONS (2)
  - Surgery [Unknown]
  - Atrioventricular block [Unknown]
